FAERS Safety Report 9163765 (Version 1)
Quarter: 2013Q1

REPORT INFORMATION
  Report Type: Spontaneous
  Country: US (occurrence: US)
  Receive Date: 20130314
  Receipt Date: 20130314
  Transmission Date: 20140127
  Serious: Yes (Other)
  Sender: FDA-Public Use
  Company Number: US-ASTRAZENECA-2013SE16397

PATIENT
  Age: 81 Year
  Sex: Male
  Weight: 95.3 kg

DRUGS (3)
  1. LISINOPRIL [Suspect]
     Indication: CARDIAC DISORDER
     Dosage: UNKNOWN DAILY
     Route: 048
     Dates: start: 2007
  2. NEXIUM [Suspect]
     Indication: GASTROOESOPHAGEAL REFLUX DISEASE
     Route: 048
     Dates: start: 2011
  3. CLOPIDOGREL [Concomitant]
     Dates: start: 2012

REACTIONS (5)
  - Renal failure [Unknown]
  - Chest pain [Unknown]
  - Condition aggravated [Unknown]
  - Eructation [Unknown]
  - Eructation [Unknown]
